FAERS Safety Report 8500196-6 (Version None)
Quarter: 2012Q3

REPORT INFORMATION
  Report Type: 
  Country: None (occurrence: None)
  Receive Date: 20120710
  Receipt Date: 20120705
  Transmission Date: 20120928
  Serious: Yes (Hospitalization)
  Sender: FDA-Public Use
  Company Number: BR-PFIZER INC-2012161527

PATIENT
  Age: 83 Year
  Sex: Female

DRUGS (1)
  1. LIPITOR [Suspect]
     Dosage: UNSPECIFIED DOSAGE, 1X/DAY
     Route: 048
     Dates: start: 20120627

REACTIONS (2)
  - LUNG DISORDER [None]
  - FEELING ABNORMAL [None]
